FAERS Safety Report 9671599 (Version 1)
Quarter: 2013Q4

REPORT INFORMATION
  Report Type: Spontaneous
  Country: SZ (occurrence: None)
  Receive Date: 20131104
  Receipt Date: 20131104
  Transmission Date: 20140711
  Serious: Yes (Other)
  Sender: FDA-Public Use
  Company Number: 2013P1020405

PATIENT
  Age: 14 Year
  Sex: Female
  Weight: 29 kg

DRUGS (1)
  1. AMIODARONE [Suspect]
     Indication: ATRIAL FIBRILLATION

REACTIONS (6)
  - Lumbar radiculopathy [None]
  - Rhabdomyolysis [None]
  - Paraesthesia [None]
  - Hypoaesthesia [None]
  - Pain [None]
  - Toxicity to various agents [None]
